FAERS Safety Report 13504163 (Version 1)
Quarter: 2017Q2

REPORT INFORMATION
  Report Type: Spontaneous
  Country: US (occurrence: US)
  Receive Date: 20170502
  Receipt Date: 20170502
  Transmission Date: 20170830
  Serious: Yes (Death)
  Sender: FDA-Public Use
  Company Number: None

PATIENT
  Age: 67 Year
  Sex: Female

DRUGS (3)
  1. LIORESAL [Suspect]
     Active Substance: BACLOFEN
     Indication: MOTOR NEURONE DISEASE
     Dosage: 10MG PRN VIA PUMP
     Dates: start: 20170118, end: 20170407
  2. BOTOX [Suspect]
     Active Substance: ONABOTULINUMTOXINA
     Indication: MOTOR NEURONE DISEASE
     Dosage: 1000 Q3M SC
     Route: 058
     Dates: start: 20141107, end: 20170407
  3. ASPIRIN. [Concomitant]
     Active Substance: ASPIRIN

REACTIONS (1)
  - Death [None]

NARRATIVE: CASE EVENT DATE: 20170407
